FAERS Safety Report 6091832-5 (Version None)
Quarter: 2009Q1

REPORT INFORMATION
  Report Type: 
  Country: None (occurrence: None)
  Receive Date: 20090225
  Receipt Date: 20080725
  Transmission Date: 20090719
  Serious: No
  Sender: FDA-Public Use
  Company Number: A0739585A

PATIENT
  Age: 42 Year
  Sex: Female

DRUGS (3)
  1. VALTREX [Suspect]
     Indication: PROPHYLAXIS
     Dosage: 500MG PER DAY
     Route: 048
     Dates: start: 20040901, end: 20080724
  2. PENICILLIN V POTASSIUM [Concomitant]
  3. PROGRAF [Concomitant]

REACTIONS (4)
  - DIARRHOEA [None]
  - DIPLOPIA [None]
  - VISUAL IMPAIRMENT [None]
  - WEIGHT INCREASED [None]
